FAERS Safety Report 18542742 (Version 5)
Quarter: 2021Q3

REPORT INFORMATION
  Report Type: Other
  Country: AR (occurrence: AR)
  Receive Date: 20201125
  Receipt Date: 20210910
  Transmission Date: 20211014
  Serious: Yes (Other)
  Sender: FDA-Public Use
  Company Number: AR-ROCHE-2720027

PATIENT
  Age: 66 Year
  Sex: Female

DRUGS (2)
  1. XOLAIR [Suspect]
     Active Substance: OMALIZUMAB
     Indication: URTICARIA CHRONIC
  2. XOLAIR [Suspect]
     Active Substance: OMALIZUMAB
     Indication: CHRONIC SPONTANEOUS URTICARIA
     Route: 058
     Dates: start: 20200426

REACTIONS (17)
  - Autoimmune thyroiditis [Unknown]
  - Hypersensitivity [Unknown]
  - Laryngeal oedema [Unknown]
  - Vitamin D decreased [Unknown]
  - Product dose omission issue [Unknown]
  - Immunosuppression [Unknown]
  - Blister [Unknown]
  - Muscle atrophy [Unknown]
  - Urticaria [Unknown]
  - Thyroid disorder [Unknown]
  - Protein deficiency [Unknown]
  - Asthmatic crisis [Unknown]
  - Blood immunoglobulin E increased [Unknown]
  - Throat tightness [Unknown]
  - Coeliac disease [Unknown]
  - Feeling abnormal [Unknown]
  - Weight decreased [Unknown]

NARRATIVE: CASE EVENT DATE: 20200816
